FAERS Safety Report 7586953-1 (Version None)
Quarter: 2011Q3

REPORT INFORMATION
  Report Type: 
  Country: None (occurrence: None)
  Receive Date: 20110701
  Receipt Date: 20110623
  Transmission Date: 20111222
  Serious: Yes (Other)
  Sender: FDA-Public Use
  Company Number: GR-AMGEN-GRCSP2011032280

PATIENT
  Age: 75 Year
  Sex: Female

DRUGS (4)
  1. CALCIUM CARBONATE [Concomitant]
     Indication: OSTEOPOROSIS
  2. FELODIPINE [Concomitant]
     Indication: HYPERTENSION
  3. PROLIA [Suspect]
     Indication: OSTEOPOROSIS
     Dosage: UNK
  4. LONARID                            /00154101/ [Concomitant]

REACTIONS (1)
  - BLOOD CREATININE INCREASED [None]
